FAERS Safety Report 9530763 (Version 1)
Quarter: 2013Q2

REPORT INFORMATION
  Report Type: Spontaneous
  Country: US (occurrence: None)
  Receive Date: 20130418
  Receipt Date: 20130418
  Transmission Date: 20140414
  Serious: Yes (Other)
  Sender: FDA-Public Use
  Company Number: 0911USA00825

PATIENT
  Age: 13 Year
  Sex: Female
  Weight: 49.9 kg

DRUGS (3)
  1. SINGULAIR [Suspect]
     Indication: SEASONAL ALLERGY
     Route: 048
     Dates: start: 20070415, end: 20070807
  2. NASONEX (MOMETASONE FUROATE) [Concomitant]
  3. ELESTAT (EPINASTINE HYDROCHLORIDE) [Concomitant]

REACTIONS (2)
  - Hallucination [None]
  - Hallucination, auditory [None]
